FAERS Safety Report 13346696 (Version 1)
Quarter: 2017Q1

REPORT INFORMATION
  Report Type: Spontaneous
  Country: US (occurrence: US)
  Receive Date: 20170317
  Receipt Date: 20170317
  Transmission Date: 20170428
  Serious: Yes (Other)
  Sender: FDA-Public Use
  Company Number: US-MYLANLABS-2017M1016776

PATIENT

DRUGS (6)
  1. FENTANYL. [Suspect]
     Active Substance: FENTANYL
     Indication: INDUCTION OF ANAESTHESIA
     Dosage: 1.25MICROG/ML FENTANYL INFUSION A RATE OF 14 ML/HR
     Route: 008
  2. FENTANYL. [Suspect]
     Active Substance: FENTANYL
     Dosage: 2ML OF FENTANYL 50MICROG/ML
     Route: 008
  3. LIDOCAINE. [Suspect]
     Active Substance: LIDOCAINE
     Dosage: 2% LIDOCAINE 3ML
     Route: 008
  4. LIDOCAINE. [Suspect]
     Active Substance: LIDOCAINE
     Indication: INDUCTION OF ANAESTHESIA
     Dosage: 1% LIDOCAINE 10ML
     Route: 008
  5. BUPIVACAINE. [Suspect]
     Active Substance: BUPIVACAINE
     Indication: INDUCTION OF ANAESTHESIA
     Dosage: 0.044% INFUSION A RATE OF 14 ML/HR
     Route: 008
  6. EPINEPHRINE. [Suspect]
     Active Substance: EPINEPHRINE
     Indication: INDUCTION OF ANAESTHESIA
     Dosage: 1:600,000 EPINEPHRINE INFUSION A RATE OF 14 ML/HR
     Route: 008

REACTIONS (2)
  - Hypotension [Recovered/Resolved]
  - Maternal exposure during delivery [Unknown]
